FAERS Safety Report 7237532-7 (Version None)
Quarter: 2011Q1

REPORT INFORMATION
  Report Type: 
  Country: None (occurrence: None)
  Receive Date: 20110121
  Receipt Date: 20110113
  Transmission Date: 20110831
  Serious: Yes (Other)
  Sender: FDA-Public Use
  Company Number: JP-PFIZER INC-2011009220

PATIENT
  Age: 72 Year
  Sex: Female

DRUGS (2)
  1. OPALMON [Suspect]
     Dosage: UNK
     Route: 048
  2. LYRICA [Suspect]
     Dosage: 150 MG DAILY
     Route: 048
     Dates: end: 20110113

REACTIONS (2)
  - DIZZINESS [None]
  - HYPERTENSION [None]
